FAERS Safety Report 25219286 (Version 1)
Quarter: 2025Q2

REPORT INFORMATION
  Report Type: Spontaneous
  Country: CN (occurrence: CN)
  Receive Date: 20250421
  Receipt Date: 20250421
  Transmission Date: 20250717
  Serious: Yes (Other)
  Sender: ALEXION PHARMACEUTICALS
  Company Number: CN-ASTRAZENECA-202504CHN012062CN

PATIENT
  Age: 75 Year
  Weight: 57 kg

DRUGS (1)
  1. IMFINZI [Suspect]
     Active Substance: DURVALUMAB
     Indication: Lung neoplasm malignant
     Dosage: 1000 MILLIGRAM, QD

REACTIONS (2)
  - Myocardial necrosis marker decreased [Recovering/Resolving]
  - Henoch-Schonlein purpura [Recovering/Resolving]
